FAERS Safety Report 7074665-2 (Version None)
Quarter: 2010Q4

REPORT INFORMATION
  Report Type: 
  Country: None (occurrence: None)
  Receive Date: 20101029
  Receipt Date: 20101018
  Transmission Date: 20110411
  Serious: Yes (Hospitalization)
  Sender: FDA-Public Use
  Company Number: B0680727A

PATIENT
  Sex: Male

DRUGS (9)
  1. ARTIST [Suspect]
     Indication: HYPERTROPHIC CARDIOMYOPATHY
     Dosage: 10MG TWICE PER DAY
     Route: 048
     Dates: start: 20100621
  2. BEPRICOR [Suspect]
     Indication: ATRIAL FIBRILLATION
     Dosage: 100MG TWICE PER DAY
     Route: 048
     Dates: start: 20070504, end: 20100911
  3. LASIX [Concomitant]
     Dates: start: 20040127
  4. ALDACTONE [Concomitant]
     Dates: start: 20100426
  5. ATELEC [Concomitant]
     Dates: start: 20050419
  6. PURSENNID [Concomitant]
     Dates: start: 20100802
  7. WARFARIN [Concomitant]
     Dates: start: 20070118
  8. RHYTHMY [Concomitant]
     Dates: start: 20090907
  9. ATELEC [Concomitant]
     Dates: start: 20050419

REACTIONS (3)
  - BRADYCARDIA [None]
  - HYPOTHYROIDISM [None]
  - RENAL IMPAIRMENT [None]
